FAERS Safety Report 25517769 (Version 2)
Quarter: 2025Q3

REPORT INFORMATION
  Report Type: Spontaneous
  Country: US (occurrence: US)
  Receive Date: 20250704
  Receipt Date: 20250731
  Transmission Date: 20251021
  Serious: No
  Sender: ALEXION PHARMACEUTICALS
  Company Number: US-AstraZeneca-CH-00898164A

PATIENT

DRUGS (1)
  1. STRENSIQ [Suspect]
     Active Substance: ASFOTASE ALFA
     Indication: Hypophosphatasia
     Route: 065

REACTIONS (7)
  - Migraine [Unknown]
  - Bone pain [Unknown]
  - Chills [Unknown]
  - Muscle spasms [Unknown]
  - Myalgia [Unknown]
  - Nasal congestion [Unknown]
  - Nasopharyngitis [Unknown]
